FAERS Safety Report 17841527 (Version 1)
Quarter: 2020Q2

REPORT INFORMATION
  Report Type: Spontaneous
  Country: CA (occurrence: CA)
  Receive Date: 20200529
  Receipt Date: 20200529
  Transmission Date: 20200714
  Serious: Yes (Other)
  Sender: FDA-Public Use
  Company Number: CA-ROCHE-2605250

PATIENT
  Age: 39 Year
  Sex: Female
  Weight: 68 kg

DRUGS (13)
  1. CELEBREX [Suspect]
     Active Substance: CELECOXIB
     Indication: PRODUCT USED FOR UNKNOWN INDICATION
     Route: 048
  2. CYMBALTA [Concomitant]
     Active Substance: DULOXETINE HYDROCHLORIDE
     Route: 048
  3. SIMPONI [Concomitant]
     Active Substance: GOLIMUMAB
     Route: 058
  4. TRAMADOL. [Concomitant]
     Active Substance: TRAMADOL
  5. ACTEMRA [Suspect]
     Active Substance: TOCILIZUMAB
     Indication: RHEUMATOID ARTHRITIS
     Route: 042
  6. CELEBREX [Suspect]
     Active Substance: CELECOXIB
     Route: 048
  7. TRIDURAL [Suspect]
     Active Substance: TRAMADOL HYDROCHLORIDE
     Indication: PRODUCT USED FOR UNKNOWN INDICATION
     Route: 065
  8. LYRICA [Concomitant]
     Active Substance: PREGABALIN
     Route: 065
  9. DEXILANT [Concomitant]
     Active Substance: DEXLANSOPRAZOLE
     Route: 065
  10. HYDROXYCHLOROQUINE SULFATE. [Concomitant]
     Active Substance: HYDROXYCHLOROQUINE SULFATE
     Route: 048
  11. SYNTHROID [Concomitant]
     Active Substance: LEVOTHYROXINE SODIUM
  12. METHOTREXATE. [Concomitant]
     Active Substance: METHOTREXATE
  13. NITROFURANTOIN. [Concomitant]
     Active Substance: NITROFURANTOIN

REACTIONS (50)
  - Fatigue [Not Recovered/Not Resolved]
  - Pyrexia [Not Recovered/Not Resolved]
  - Trigger finger [Not Recovered/Not Resolved]
  - Weight decreased [Not Recovered/Not Resolved]
  - Brain neoplasm benign [Not Recovered/Not Resolved]
  - Breast cyst [Not Recovered/Not Resolved]
  - Cough [Not Recovered/Not Resolved]
  - Headache [Not Recovered/Not Resolved]
  - Herpes zoster [Not Recovered/Not Resolved]
  - Hypotension [Not Recovered/Not Resolved]
  - Lower respiratory tract infection [Not Recovered/Not Resolved]
  - Myalgia [Not Recovered/Not Resolved]
  - Pain in extremity [Not Recovered/Not Resolved]
  - Peripheral swelling [Not Recovered/Not Resolved]
  - Platelet morphology abnormal [Not Recovered/Not Resolved]
  - Rash [Not Recovered/Not Resolved]
  - Throat irritation [Not Recovered/Not Resolved]
  - Limb mass [Not Recovered/Not Resolved]
  - Oral mucosal blistering [Not Recovered/Not Resolved]
  - Pain [Not Recovered/Not Resolved]
  - Rhinorrhoea [Not Recovered/Not Resolved]
  - Tongue discomfort [Not Recovered/Not Resolved]
  - Arthralgia [Not Recovered/Not Resolved]
  - Discomfort [Not Recovered/Not Resolved]
  - Drug ineffective [Unknown]
  - Eye inflammation [Not Recovered/Not Resolved]
  - Haemoptysis [Not Recovered/Not Resolved]
  - Hypersensitivity [Not Recovered/Not Resolved]
  - Nasopharyngitis [Not Recovered/Not Resolved]
  - Productive cough [Not Recovered/Not Resolved]
  - Bursitis [Not Recovered/Not Resolved]
  - Cystitis [Not Recovered/Not Resolved]
  - Electric shock [Not Recovered/Not Resolved]
  - Electrocardiogram abnormal [Not Recovered/Not Resolved]
  - Neuralgia [Not Recovered/Not Resolved]
  - Oral herpes [Not Recovered/Not Resolved]
  - Pruritus [Not Recovered/Not Resolved]
  - Swollen tongue [Not Recovered/Not Resolved]
  - Tremor [Not Recovered/Not Resolved]
  - Loss of consciousness [Not Recovered/Not Resolved]
  - Contusion [Not Recovered/Not Resolved]
  - Laryngitis [Not Recovered/Not Resolved]
  - Weight increased [Not Recovered/Not Resolved]
  - Drug hypersensitivity [Not Recovered/Not Resolved]
  - Dyspepsia [Not Recovered/Not Resolved]
  - Infection [Not Recovered/Not Resolved]
  - Loss of personal independence in daily activities [Not Recovered/Not Resolved]
  - Nausea [Not Recovered/Not Resolved]
  - Abdominal pain [Not Recovered/Not Resolved]
  - Stomatitis [Not Recovered/Not Resolved]
